FAERS Safety Report 19239725 (Version 2)
Quarter: 2021Q2

REPORT INFORMATION
  Report Type: Report from Study
  Country: US (occurrence: US)
  Receive Date: 20210510
  Receipt Date: 20210628
  Transmission Date: 20210717
  Serious: Yes (Life-Threatening, Hospitalization)
  Sender: FDA-Public Use
  Company Number: US-GLAXOSMITHKLINE-US2020GSK095922

PATIENT
  Age: 63 Year
  Sex: Female

DRUGS (7)
  1. DOSTARLIMAB [Suspect]
     Active Substance: DOSTARLIMAB
     Indication: ENDOMETRIAL CANCER
     Dosage: 500 MG
     Dates: start: 20200528, end: 20200528
  2. HYDROCHLOROTHIAZIDE + TRIAMTERENE [Concomitant]
     Active Substance: HYDROCHLOROTHIAZIDE\TRIAMTERENE
  3. PACLITAXEL. [Suspect]
     Active Substance: PACLITAXEL
     Indication: ENDOMETRIAL CANCER
     Dosage: 175 MG/M2
     Route: 042
     Dates: start: 20200528, end: 20200528
  4. CARBOPLATIN (NON?GSK COMPARATOR) [Suspect]
     Active Substance: CARBOPLATIN
     Indication: ENDOMETRIAL CANCER
     Dosage: 5 AUC
     Route: 042
     Dates: start: 20200528, end: 20200528
  5. CARBOPLATIN (NON?GSK COMPARATOR) [Suspect]
     Active Substance: CARBOPLATIN
     Dosage: 631 AUC
     Route: 042
     Dates: start: 20200528, end: 20200528
  6. PACLITAXEL. [Suspect]
     Active Substance: PACLITAXEL
     Dosage: 396 MG/M2
     Route: 042
     Dates: start: 20200528, end: 20200528
  7. LISINOPRIL. [Concomitant]
     Active Substance: LISINOPRIL

REACTIONS (1)
  - Hyponatraemia [Recovered/Resolved]

NARRATIVE: CASE EVENT DATE: 20200604
